FAERS Safety Report 11849038 (Version 1)
Quarter: 2015Q4

REPORT INFORMATION
  Report Type: Spontaneous
  Country: CA (occurrence: CA)
  Receive Date: 20151218
  Receipt Date: 20151218
  Transmission Date: 20160305
  Serious: Yes (Other)
  Sender: FDA-Public Use
  Company Number: CA-TEVA-619055ACC

PATIENT
  Age: 71 Year
  Sex: Female

DRUGS (7)
  1. MEVACOR [Concomitant]
     Active Substance: LOVASTATIN
  2. RATIO-NYSTATIN [Concomitant]
     Active Substance: NYSTATIN
  3. LOVASTATIN. [Suspect]
     Active Substance: LOVASTATIN
     Indication: DYSLIPIDAEMIA
     Dosage: 20 MILLIGRAM DAILY;
     Route: 048
  4. LEVOTHYROXINE. [Concomitant]
     Active Substance: LEVOTHYROXINE
  5. HYDROXYZINE [Concomitant]
     Active Substance: HYDROXYZINE\HYDROXYZINE HYDROCHLORIDE
  6. VOLTAREN [Concomitant]
     Active Substance: DICLOFENAC SODIUM
  7. MICARDIS [Concomitant]
     Active Substance: TELMISARTAN

REACTIONS (2)
  - Dyspnoea [Recovered/Resolved]
  - Myalgia [Recovered/Resolved]
